FAERS Safety Report 20151551 (Version 1)
Quarter: 2021Q4

REPORT INFORMATION
  Report Type: Spontaneous
  Country: US (occurrence: None)
  Receive Date: 20211203
  Receipt Date: 20211203
  Transmission Date: 20220303
  Serious: No
  Sender: FDA-Public Use
  Company Number: None

PATIENT
  Age: 83 Year
  Sex: Male
  Weight: 31.05 kg

DRUGS (1)
  1. LEUKERAN [Suspect]
     Active Substance: CHLORAMBUCIL
     Indication: Chronic lymphocytic leukaemia
     Dosage: OTHER FREQUENCY : EVERY 14 DAYS;?
     Route: 048
     Dates: start: 20211029

REACTIONS (2)
  - Platelet count decreased [None]
  - Fatigue [None]

NARRATIVE: CASE EVENT DATE: 20211203
